FAERS Safety Report 6291623-6 (Version None)
Quarter: 2009Q3

REPORT INFORMATION
  Report Type: 
  Country: None (occurrence: None)
  Receive Date: 20090730
  Receipt Date: 20090722
  Transmission Date: 20100115
  Serious: Yes (Other)
  Sender: FDA-Public Use
  Company Number: US-ASTRAZENECA-2009SE05565

PATIENT
  Age: 2 Year

DRUGS (1)
  1. LIDOCAINE [Suspect]

REACTIONS (3)
  - ACUTE RESPIRATORY FAILURE [None]
  - CONVULSION [None]
  - INCORRECT ROUTE OF DRUG ADMINISTRATION [None]
